FAERS Safety Report 8552718-7 (Version None)
Quarter: 2012Q3

REPORT INFORMATION
  Report Type: 
  Country: None (occurrence: None)
  Receive Date: 20120731
  Receipt Date: 20120723
  Transmission Date: 20120928
  Serious: Yes (Hospitalization)
  Sender: FDA-Public Use
  Company Number: PHHY2012FR064336

PATIENT
  Sex: Female

DRUGS (1)
  1. TASIGNA [Suspect]
     Dosage: UNK
     Dates: start: 20120312

REACTIONS (4)
  - PANCREATIC DISORDER [None]
  - ABDOMINAL PAIN [None]
  - DIARRHOEA [None]
  - HEPATITIS ACUTE [None]
